FAERS Safety Report 11068475 (Version 1)
Quarter: 2015Q2

REPORT INFORMATION
  Report Type: Spontaneous
  Country: US (occurrence: US)
  Receive Date: 20150427
  Receipt Date: 20150427
  Transmission Date: 20150821
  Serious: No
  Sender: FDA-Public Use
  Company Number: US-PFIZER INC-2015138640

PATIENT
  Age: 75 Year
  Sex: Male
  Weight: 91 kg

DRUGS (13)
  1. MIRTAZAPINE. [Concomitant]
     Active Substance: MIRTAZAPINE
     Indication: INSOMNIA
  2. OXYCODONE [Concomitant]
     Active Substance: OXYCODONE
     Indication: BACK PAIN
     Dosage: 7.5/325 MG, 1 TABLET 3 TIMES A DAY, AS NEEDED
     Route: 048
  3. AMLODIPINE BESILATE [Concomitant]
     Active Substance: AMLODIPINE BESYLATE
     Indication: BLOOD PRESSURE ABNORMAL
     Dosage: 5 MG, DAILY
     Route: 048
  4. METOPROLOL SUCCINATE ER [Concomitant]
     Active Substance: METOPROLOL SUCCINATE
     Indication: BLOOD PRESSURE ABNORMAL
     Dosage: 25 MG, DAILY
     Route: 048
  5. GABAPENTIN. [Suspect]
     Active Substance: GABAPENTIN
     Dosage: 300 MG, 4X/DAY
     Route: 048
     Dates: start: 201501, end: 20150415
  6. GABAPENTIN. [Suspect]
     Active Substance: GABAPENTIN
     Dosage: 150 MG, 3X/DAY
     Route: 048
  7. VITAMINS [Concomitant]
     Active Substance: VITAMINS
     Dosage: ONE A DAY
     Route: 048
  8. CITALOPRAM [Concomitant]
     Active Substance: CITALOPRAM HYDROBROMIDE
     Indication: DEPRESSION
     Dosage: 10 MG, 3X/DAY
     Route: 048
  9. GABAPENTIN. [Suspect]
     Active Substance: GABAPENTIN
     Indication: NEUROPATHY PERIPHERAL
     Dosage: LOW MILLIGRAM
     Route: 048
     Dates: start: 2014
  10. CLONAZEPAM. [Concomitant]
     Active Substance: CLONAZEPAM
     Dosage: 0.5 MG, TWICE A DAY OR AS NEEDED
     Route: 048
  11. MIRTAZAPINE. [Concomitant]
     Active Substance: MIRTAZAPINE
     Indication: NERVOUSNESS
     Dosage: 15 MG, 1X/DAY
     Route: 048
  12. GABAPENTIN. [Suspect]
     Active Substance: GABAPENTIN
     Indication: NEURALGIA
     Dosage: TWO FOUR TIMES A DAY
     Route: 048
  13. CLONAZEPAM. [Concomitant]
     Active Substance: CLONAZEPAM
     Indication: ANXIETY
     Dosage: 0.5 MG, TWICE A DAY OR AS NEEDED
     Route: 048

REACTIONS (2)
  - Condition aggravated [Recovered/Resolved]
  - Neuralgia [Recovered/Resolved]

NARRATIVE: CASE EVENT DATE: 2014
